FAERS Safety Report 10422540 (Version 1)
Quarter: 2014Q3

REPORT INFORMATION
  Report Type: Report from Study
  Country: BR (occurrence: BR)
  Receive Date: 20140901
  Receipt Date: 20140901
  Transmission Date: 20150326
  Serious: Yes (Hospitalization, Other)
  Sender: FDA-Public Use
  Company Number: PHHY2014BR105332

PATIENT
  Sex: Male
  Weight: 86 kg

DRUGS (7)
  1. RIVOTRIL [Concomitant]
     Active Substance: CLONAZEPAM
     Indication: SLEEP DISORDER
     Dosage: UNK UKN, UNK
  2. ONBREZ [Suspect]
     Active Substance: INDACATEROL
     Indication: OFF LABEL USE
  3. MONOCORDIL [Concomitant]
     Active Substance: ISOSORBIDE MONONITRATE
     Indication: CARDIAC DISORDER
     Dosage: 1 DF, BID (IN THE MORNING AND AT THE NIGHT)
  4. IMOVANE [Concomitant]
     Active Substance: ZOPICLONE
     Indication: NERVOUS SYSTEM DISORDER
     Dosage: UNK UKN, UNK
  5. SELOZOK [Concomitant]
     Active Substance: METOPROLOL SUCCINATE
     Indication: CARDIAC DISORDER
     Dosage: UNK UKN, UNK
  6. ONBREZ [Suspect]
     Active Substance: INDACATEROL
     Indication: TOBACCO USER
     Dosage: UNK UKN, UNK
     Route: 055
  7. CAPTOPRIL. [Concomitant]
     Active Substance: CAPTOPRIL
     Indication: CARDIAC DISORDER
     Dosage: 1 DF, QD

REACTIONS (13)
  - Pneumonia [Recovering/Resolving]
  - Neurological decompensation [Recovering/Resolving]
  - Gait disturbance [Recovering/Resolving]
  - Asthenia [Recovering/Resolving]
  - Emphysema [Recovering/Resolving]
  - Memory impairment [Recovering/Resolving]
  - Fall [Recovering/Resolving]
  - General physical health deterioration [Unknown]
  - Abnormal behaviour [Recovering/Resolving]
  - Dyspnoea [Recovering/Resolving]
  - Nervousness [Unknown]
  - Feeling abnormal [Recovering/Resolving]
  - Concomitant disease aggravated [Recovering/Resolving]
